FAERS Safety Report 9741173 (Version 1)
Quarter: 2013Q4

REPORT INFORMATION
  Report Type: Spontaneous
  Country: US (occurrence: US)
  Receive Date: 20131209
  Receipt Date: 20131209
  Transmission Date: 20140711
  Serious: No
  Sender: FDA-Public Use
  Company Number: US-VERTEX PHARMACEUTICALS INC-2013-011438

PATIENT
  Age: 47 Year
  Sex: Male

DRUGS (3)
  1. INCIVEK [Suspect]
     Indication: HEPATITIS C
     Dosage: 750 MG, TID
     Route: 048
     Dates: start: 20131005
  2. COPEGUS [Suspect]
     Indication: HEPATITIS C
     Dosage: 2.5 DF, BID
     Dates: start: 20131005
  3. PEGASYS [Suspect]
     Indication: HEPATITIS C
     Dosage: 180 ?G, QW
     Route: 058
     Dates: start: 20131005

REACTIONS (6)
  - Drug dose omission [Recovered/Resolved]
  - Pyrexia [Recovered/Resolved]
  - Dry mouth [Not Recovered/Not Resolved]
  - White blood cell count decreased [Unknown]
  - Fatigue [Not Recovered/Not Resolved]
  - Pruritus [Not Recovered/Not Resolved]
